FAERS Safety Report 7484466-9 (Version None)
Quarter: 2011Q2

REPORT INFORMATION
  Report Type: 
  Country: None (occurrence: None)
  Receive Date: 20110517
  Receipt Date: 20110517
  Transmission Date: 20111010
  Serious: Yes (Hospitalization)
  Sender: FDA-Public Use
  Company Number: FR-JNJFOC-20100608174

PATIENT
  Sex: Male
  Weight: 33.2 kg

DRUGS (2)
  1. INFLIXIMAB, RECOMBINANT [Suspect]
     Indication: CROHN'S DISEASE
     Route: 042
     Dates: start: 20090729, end: 20100708
  2. MERCAPTOPURINE [Concomitant]

REACTIONS (3)
  - GASTROENTERITIS [None]
  - DRUG EFFECT DECREASED [None]
  - CROHN'S DISEASE [None]
